FAERS Safety Report 18607388 (Version 3)
Quarter: 2021Q2

REPORT INFORMATION
  Report Type: Spontaneous
  Country: US (occurrence: US)
  Receive Date: 20201211
  Receipt Date: 20210513
  Transmission Date: 20210717
  Serious: No
  Sender: FDA-Public Use
  Company Number: US-PFIZER INC-2020485975

PATIENT
  Age: 69 Year
  Sex: Female

DRUGS (1)
  1. IBRANCE [Suspect]
     Active Substance: PALBOCICLIB
     Indication: BREAST CANCER FEMALE
     Dosage: 100 MG

REACTIONS (8)
  - Malaise [Unknown]
  - Constipation [Unknown]
  - Depressed mood [Recovering/Resolving]
  - Nausea [Unknown]
  - Fatigue [Unknown]
  - Alopecia [Recovering/Resolving]
  - Pain [Unknown]
  - Feeling abnormal [Unknown]
